FAERS Safety Report 8610793-5 (Version None)
Quarter: 2012Q3

REPORT INFORMATION
  Report Type: 
  Country: None (occurrence: None)
  Receive Date: 20120822
  Receipt Date: 20120817
  Transmission Date: 20120928
  Serious: Yes (Other)
  Sender: FDA-Public Use
  Company Number: ZA-ABBOTT-12P-143-0969850-00

PATIENT
  Age: 10 Month
  Sex: Female
  Weight: 7.8 kg

DRUGS (1)
  1. ULTANE [Suspect]
     Indication: INDUCTION AND MAINTENANCE OF ANAESTHESIA
     Route: 055
     Dates: start: 20120814, end: 20120814

REACTIONS (4)
  - BODY TEMPERATURE INCREASED [None]
  - HYPERTHERMIA MALIGNANT [None]
  - HEART RATE INCREASED [None]
  - METABOLIC ACIDOSIS [None]
